FAERS Safety Report 8119482-7 (Version None)
Quarter: 2012Q1

REPORT INFORMATION
  Report Type: 
  Country: None (occurrence: None)
  Receive Date: 20120207
  Receipt Date: 20120130
  Transmission Date: 20120608
  Serious: Yes (Other)
  Sender: FDA-Public Use
  Company Number: PHHY2012JP008953

PATIENT
  Sex: Female

DRUGS (2)
  1. TEGRETOL [Suspect]
     Indication: CONVULSION
     Dosage: 200 MG, DAILY (50 MG IN THE MORNING, 50 MG IN THE DAYTIME AND 100 MG AT NIGHT)
     Route: 048
  2. TEGRETOL [Suspect]
     Dosage: 200 MG, DAILY (100 MG IN THE MORNING AND 100 MG IN THE EVENING)
     Route: 048

REACTIONS (7)
  - FLASHBACK [None]
  - MEMORY IMPAIRMENT [None]
  - VISION BLURRED [None]
  - INTRAOCULAR PRESSURE INCREASED [None]
  - VISUAL ACUITY REDUCED [None]
  - LOSS OF CONSCIOUSNESS [None]
  - WITHDRAWAL SYNDROME [None]
